FAERS Safety Report 24859474 (Version 1)
Quarter: 2025Q1

REPORT INFORMATION
  Report Type: Spontaneous
  Country: US (occurrence: US)
  Receive Date: 20250119
  Receipt Date: 20250119
  Transmission Date: 20250409
  Serious: No
  Sender: SANOFI AVENTIS
  Company Number: US-SANOFI-02374284

PATIENT

DRUGS (1)
  1. DUPIXENT [Suspect]
     Active Substance: DUPILUMAB
     Indication: Chronic obstructive pulmonary disease
     Route: 065

REACTIONS (5)
  - Back pain [Unknown]
  - Vision blurred [Unknown]
  - Headache [Unknown]
  - Eye irritation [Unknown]
  - Arthralgia [Unknown]
